FAERS Safety Report 25389277 (Version 1)
Quarter: 2025Q2

REPORT INFORMATION
  Report Type: Report from Study
  Country: US (occurrence: US)
  Receive Date: 20250603
  Receipt Date: 20250603
  Transmission Date: 20250716
  Serious: Yes (Other)
  Sender: ABBVIE
  Company Number: US-ABBVIE-6306028

PATIENT
  Age: 45 Year
  Sex: Female

DRUGS (1)
  1. HUMIRA [Suspect]
     Active Substance: ADALIMUMAB
     Indication: Product used for unknown indication
     Route: 058
     Dates: start: 202411

REACTIONS (9)
  - Haemorrhage [Recovering/Resolving]
  - Abdominal distension [Unknown]
  - Flatulence [Unknown]
  - Gastric dilatation [Unknown]
  - Rectal discharge [Recovering/Resolving]
  - Pelvic congestion [Unknown]
  - Gastrointestinal disorder [Unknown]
  - Abdominal pain upper [Recovering/Resolving]
  - Colonoscopy abnormal [Unknown]

NARRATIVE: CASE EVENT DATE: 20250101
